FAERS Safety Report 14752349 (Version 1)
Quarter: 2018Q2

REPORT INFORMATION
  Report Type: Report from Study
  Country: US (occurrence: US)
  Receive Date: 20180412
  Receipt Date: 20180412
  Transmission Date: 20180711
  Serious: Yes (Hospitalization)
  Sender: FDA-Public Use
  Company Number: US-BAYER-2018-058205

PATIENT
  Age: 57 Year
  Sex: Male
  Weight: 86.62 kg

DRUGS (4)
  1. COUMADIN [Concomitant]
     Active Substance: WARFARIN SODIUM
  2. ADEMPAS [Suspect]
     Active Substance: RIOCIGUAT
     Indication: PULMONARY ARTERIAL HYPERTENSION
     Dosage: UNK
     Dates: start: 20171026
  3. ADEMPAS [Suspect]
     Active Substance: RIOCIGUAT
     Indication: PULMONARY ARTERIAL HYPERTENSION
     Dosage: 1 MG, TID
  4. LETAIRIS [Concomitant]
     Active Substance: AMBRISENTAN

REACTIONS (6)
  - Blood sodium decreased [Unknown]
  - Blood count abnormal [Unknown]
  - Fluid retention [None]
  - Presyncope [None]
  - Dizziness [None]
  - Vomiting [Unknown]
